FAERS Safety Report 23795910 (Version 2)
Quarter: 2024Q2

REPORT INFORMATION
  Report Type: Spontaneous
  Country: US (occurrence: US)
  Receive Date: 20240429
  Receipt Date: 20240529
  Transmission Date: 20240716
  Serious: No
  Sender: FDA-Public Use
  Company Number: US-BIOGEN-2024BI01261867

PATIENT
  Sex: Female

DRUGS (1)
  1. TYSABRI [Interacting]
     Active Substance: NATALIZUMAB
     Indication: Multiple sclerosis
     Route: 050
     Dates: start: 20220624

REACTIONS (1)
  - Poor venous access [Not Recovered/Not Resolved]
